FAERS Safety Report 24236262 (Version 1)
Quarter: 2024Q3

REPORT INFORMATION
  Report Type: Spontaneous
  Country: US (occurrence: US)
  Receive Date: 20240822
  Receipt Date: 20240822
  Transmission Date: 20241017
  Serious: Yes (Death, Hospitalization)
  Sender: AMNEAL
  Company Number: US-AMNEAL PHARMACEUTICALS-2024-AMRX-02994

PATIENT
  Age: 79 Year
  Sex: Male

DRUGS (6)
  1. NIACIN [Suspect]
     Active Substance: NIACIN
     Indication: Hyperlipidaemia
     Dosage: 2500 MG NIACIN FOR THE PAST 15 YEARS
     Route: 065
  2. ICOSAPENT ETHYL [Concomitant]
     Active Substance: ICOSAPENT ETHYL
     Indication: Hyperlipidaemia
     Dosage: UNK
     Route: 065
  3. ASPIRIN [Concomitant]
     Active Substance: ASPIRIN
     Indication: Coronary artery disease
     Dosage: 81 MILLIGRAM
     Route: 065
  4. ASPIRIN [Concomitant]
     Active Substance: ASPIRIN
     Indication: Hypertension
  5. CARVEDILOL [Concomitant]
     Active Substance: CARVEDILOL
     Indication: Coronary artery disease
     Dosage: 3.125 MILLIGRAM
     Route: 065
  6. CARVEDILOL [Concomitant]
     Active Substance: CARVEDILOL
     Indication: Hypertension

REACTIONS (8)
  - Drug-induced liver injury [Fatal]
  - Hepatic cirrhosis [Fatal]
  - Portal hypertension [Fatal]
  - Ascites [Fatal]
  - Portal hypertensive colopathy [Fatal]
  - Varices oesophageal [Fatal]
  - Steatohepatitis [Fatal]
  - Prescription drug used without a prescription [Unknown]
